FAERS Safety Report 18451983 (Version 1)
Quarter: 2020Q4

REPORT INFORMATION
  Report Type: Spontaneous
  Country: US (occurrence: US)
  Receive Date: 20201031
  Receipt Date: 20201031
  Transmission Date: 20210114
  Serious: Yes (Life-Threatening)
  Sender: FDA-Public Use
  Company Number: None

PATIENT
  Age: 71 Year
  Sex: Female
  Weight: 56.3 kg

DRUGS (16)
  1. OMNIPAQUE [Suspect]
     Active Substance: IOHEXOL
     Indication: SCAN WITH CONTRAST
     Dates: start: 20200918, end: 20200918
  2. LOSARTAN 100MG [Concomitant]
     Active Substance: LOSARTAN
  3. ONDANSETRON 8MG [Concomitant]
     Active Substance: ONDANSETRON
     Dates: start: 20161026
  4. MEDICAL CANNABIS [Concomitant]
     Active Substance: CANNABIS SATIVA SUBSP. INDICA TOP
  5. NIRAPARIB 100MG [Concomitant]
     Dates: start: 20200903
  6. FAMOTIDINE 10MG [Concomitant]
  7. CHOLECALCIFEROL VITAMIN D3 1000UNITS [Concomitant]
     Dates: start: 20200804
  8. DULOXETINE DR 30MG [Concomitant]
     Active Substance: DULOXETINE
     Dates: start: 20200807
  9. MIRALAX 17GRAM/DOSE POWDER [Concomitant]
  10. PROCHLORPERAZINE 5MG [Concomitant]
     Dates: start: 20161026
  11. AMLODIPINE [Concomitant]
     Active Substance: AMLODIPINE BESYLATE
  12. FUROSEMIDE 40MG [Concomitant]
     Active Substance: FUROSEMIDE
     Dates: start: 20200915
  13. SENNA 8.6MG [Concomitant]
     Dates: start: 20150505
  14. INV CANNABIDIOL 300MG/ML ORAL SOLUTION [Concomitant]
  15. LORAZEPAM 1MG [Concomitant]
     Active Substance: LORAZEPAM
     Dates: start: 20150401, end: 20200923
  16. DOCUSATE SODIUM 100MG [Concomitant]
     Active Substance: DOCUSATE SODIUM

REACTIONS (12)
  - Hypersensitivity [None]
  - Dyspnoea [None]
  - Musculoskeletal discomfort [None]
  - Palpitations [None]
  - Pruritus [None]
  - Dizziness [None]
  - Hyperhidrosis [None]
  - Cyanosis [None]
  - Syncope [None]
  - Anaphylactic reaction [None]
  - Tongue pruritus [None]
  - Oxygen saturation decreased [None]

NARRATIVE: CASE EVENT DATE: 20200918
